FAERS Safety Report 16867295 (Version 1)
Quarter: 2019Q3

REPORT INFORMATION
  Report Type: Report from Study
  Country: None (occurrence: AU)
  Receive Date: 20190930
  Receipt Date: 20190930
  Transmission Date: 20191005
  Serious: Yes (Death, Hospitalization)
  Sender: FDA-Public Use
  Company Number: AU-US WORLDMEDS, LLC-USW201909-001834

PATIENT
  Age: 68 Year
  Sex: Female

DRUGS (1)
  1. APOMORPHINE HYDROCHLORIDE [Suspect]
     Active Substance: APOMORPHINE HYDROCHLORIDE
     Indication: PRODUCT USED FOR UNKNOWN INDICATION
     Dosage: LENGTH OF INFUSION (HOURS): 20, VOLUME IN SYRINGE: 20, TOTAL DOSE IN SYRINGE: 100MG, DOSE: 4MG, FLOW
     Route: 058

REACTIONS (5)
  - Death [Fatal]
  - Dyspnoea [Unknown]
  - Nodule [Unknown]
  - Oesophageal spasm [Unknown]
  - Stress [Unknown]

NARRATIVE: CASE EVENT DATE: 20190910
